FAERS Safety Report 10035383 (Version 4)
Quarter: 2014Q2

REPORT INFORMATION
  Report Type: Spontaneous
  Country: US (occurrence: US)
  Receive Date: 20140325
  Receipt Date: 20140513
  Transmission Date: 20141212
  Serious: No
  Sender: FDA-Public Use
  Company Number: US-PFIZER INC-2014079770

PATIENT
  Age: 76 Year
  Sex: Female

DRUGS (2)
  1. GLIPIZIDE [Suspect]
     Indication: DIABETES MELLITUS
     Dosage: 10 MG, DAILY
     Route: 048
  2. GLIPIZIDE [Suspect]
     Dosage: UNK

REACTIONS (8)
  - Abdominal pain upper [Recovered/Resolved]
  - Nausea [Recovered/Resolved]
  - Drug intolerance [Unknown]
  - Malabsorption [Unknown]
  - Product solubility abnormal [Unknown]
  - Reaction to drug excipients [Unknown]
  - Drug hypersensitivity [Unknown]
  - Drug dispensing error [Unknown]
